FAERS Safety Report 16629693 (Version 2)
Quarter: 2019Q3

REPORT INFORMATION
  Report Type: Report from Study
  Country: IN (occurrence: IN)
  Receive Date: 20190725
  Receipt Date: 20190816
  Transmission Date: 20191004
  Serious: Yes (Hospitalization)
  Sender: FDA-Public Use
  Company Number: IN-ROCHE-2360907

PATIENT
  Age: 69 Year
  Sex: Female
  Weight: 43 kg

DRUGS (20)
  1. FORACORT [Concomitant]
     Active Substance: BUDESONIDE\FORMOTEROL FUMARATE
     Route: 050
     Dates: start: 20190720
  2. TRAJENTA [Concomitant]
     Active Substance: LINAGLIPTIN
     Indication: TYPE 2 DIABETES MELLITUS
     Route: 048
     Dates: start: 20190720
  3. REVAS-AM [Concomitant]
     Indication: HYPERTENSION
     Dosage: 5MG/50MG
     Route: 048
     Dates: start: 20190720
  4. PACITANE [Concomitant]
     Active Substance: TRIHEXYPHENIDYL HYDROCHLORIDE
     Indication: PARKINSON^S DISEASE
     Dosage: 2 MG HALF TABLET
     Route: 048
     Dates: start: 20190722
  5. HUMINSULIN [Concomitant]
     Active Substance: INSULIN HUMAN
     Dosage: 20 UNITS BEFORE BREAKFAST?30/70
     Route: 042
     Dates: start: 20190724
  6. CREMAFFIN [Concomitant]
     Dosage: 3 TSF AT BED TIME
     Route: 048
     Dates: start: 20190720
  7. NEXPRO-RD [Concomitant]
     Indication: DYSPEPSIA
     Route: 048
     Dates: start: 20190720
  8. DUOLIN RESPULES [Concomitant]
     Active Substance: LEVALBUTEROL HYDROCHLORIDE
     Route: 050
     Dates: start: 20190720
  9. DYTOR [Concomitant]
     Active Substance: TORSEMIDE
     Route: 048
     Dates: start: 20190721
  10. AB PHYLLINE [Concomitant]
     Indication: ASTHMA
  11. FOLVITE [FOLIC ACID] [Concomitant]
     Indication: VITAMIN SUPPLEMENTATION
     Route: 048
     Dates: start: 20190720
  12. LANTUS [Concomitant]
     Active Substance: INSULIN GLARGINE
     Dosage: 12 UNITS AT BEDTIME
     Route: 058
     Dates: start: 20190720, end: 20190723
  13. ULTRACET [Concomitant]
     Active Substance: ACETAMINOPHEN\TRAMADOL HYDROCHLORIDE
     Indication: PAIN
     Route: 048
     Dates: start: 20190720
  14. URSOCOL [Concomitant]
     Route: 048
     Dates: start: 20190720
  15. CIPLOX [CIPROFLOXACIN] [Concomitant]
     Active Substance: CIPROFLOXACIN
     Indication: BACTERIAL INFECTION
     Route: 048
     Dates: start: 20190724
  16. METFORMIN HYDROCHLORIDE. [Concomitant]
     Active Substance: METFORMIN HYDROCHLORIDE
     Route: 048
     Dates: start: 20190722
  17. LETROZOLE. [Concomitant]
     Active Substance: LETROZOLE
  18. AB PHYLLINE [Concomitant]
     Indication: CHRONIC OBSTRUCTIVE PULMONARY DISEASE
     Route: 048
     Dates: start: 20190721
  19. TRASTUZUMAB EMTANSINE [Suspect]
     Active Substance: ADO-TRASTUZUMAB EMTANSINE
     Indication: HER-2 POSITIVE BREAST CANCER
     Dosage: 3.6 MG/KG LOADING DOSE FOR FIRST CYCLE UP TO 90 MINUTES (4:20 TO 5: 50 PM)?3.6 MG/KG UPTO 30 MINUTES
     Route: 042
     Dates: start: 20180518, end: 20190724
  20. NEXPRO-RD [Concomitant]
     Indication: HYPERCHLORHYDRIA

REACTIONS (1)
  - Acute kidney injury [Recovered/Resolved]

NARRATIVE: CASE EVENT DATE: 20190720
